FAERS Safety Report 9002286 (Version 1)
Quarter: 2012Q4

REPORT INFORMATION
  Report Type: Spontaneous
  Country: US (occurrence: None)
  Receive Date: 20120828
  Receipt Date: 20120828
  Transmission Date: 20130627
  Serious: No
  Sender: FDA-Public Use
  Company Number: 2012-00138

PATIENT
  Age: 31 Year
  Sex: Female
  Weight: 61.24 kg

DRUGS (1)
  1. ZICAM EXTREME CONGESTION RELIEF [Suspect]
     Indication: NASAL DECONGESTION THERAPY
     Dosage: used twice daily for 2-3 days
     Dates: start: 20120301, end: 20120303

REACTIONS (2)
  - Anosmia [None]
  - Ageusia [None]
